FAERS Safety Report 19383019 (Version 3)
Quarter: 2021Q3

REPORT INFORMATION
  Report Type: Spontaneous
  Country: IT (occurrence: IT)
  Receive Date: 20210607
  Receipt Date: 20210722
  Transmission Date: 20211014
  Serious: Yes (Hospitalization)
  Sender: FDA-Public Use
  Company Number: IT-ALLERGAN-2121375US

PATIENT
  Sex: Female
  Weight: 55 kg

DRUGS (5)
  1. VORTIOXETINE. [Suspect]
     Active Substance: VORTIOXETINE
     Indication: MAJOR DEPRESSION
     Dosage: 10 MG, QD, ORAL DROPS
     Route: 048
  2. CITALOPRAM HYDROBROMIDE ? BP [Suspect]
     Active Substance: CITALOPRAM HYDROBROMIDE
     Indication: MAJOR DEPRESSION
     Dosage: 8 MG, QD
     Route: 048
     Dates: start: 202006, end: 202010
  3. ZOLPIDEM [Concomitant]
     Active Substance: ZOLPIDEM TARTRATE
     Indication: INSOMNIA
     Dosage: 10 MG
     Route: 048
  4. DELORAZEPAM [Concomitant]
     Active Substance: DELORAZEPAM
     Indication: ANXIETY
     Dosage: 2 MG
     Route: 042
  5. VORTIOXETINE. [Suspect]
     Active Substance: VORTIOXETINE
     Dosage: 5 MG, QD, TABLET
     Route: 048
     Dates: start: 202010

REACTIONS (6)
  - Prescribed underdose [Unknown]
  - Restlessness [Unknown]
  - Therapeutic response decreased [Unknown]
  - Flat affect [Unknown]
  - Akathisia [Unknown]
  - Nausea [Recovered/Resolved]
